FAERS Safety Report 8364604-6 (Version None)
Quarter: 2012Q2

REPORT INFORMATION
  Report Type: 
  Country: None (occurrence: None)
  Receive Date: 20120516
  Receipt Date: 20120509
  Transmission Date: 20120825
  Serious: Yes (Hospitalization)
  Sender: FDA-Public Use
  Company Number: FR-ROCHE-1067704

PATIENT
  Sex: Female

DRUGS (2)
  1. HERCEPTIN [Suspect]
     Indication: BREAST CANCER
     Route: 042
     Dates: start: 20120220
  2. MEDROL [Concomitant]
     Indication: PREMEDICATION
     Route: 048

REACTIONS (2)
  - HOT FLUSH [None]
  - SENSE OF OPPRESSION [None]
